FAERS Safety Report 10678119 (Version 3)
Quarter: 2015Q1

REPORT INFORMATION
  Report Type: Spontaneous
  Country: CH (occurrence: None)
  Receive Date: 20141223
  Receipt Date: 20150109
  Transmission Date: 20150720
  Serious: Yes (Other)
  Sender: FDA-Public Use
  Company Number: 8001742

PATIENT
  Age: 85 Year
  Sex: Female

DRUGS (28)
  1. AMLODIPINE [Suspect]
     Active Substance: AMLODIPINE BESYLATE
     Indication: ESSENTIAL HYPERTENSION
     Dosage: 10 MG (10 MG, 1 IN 1 D), ORAL
     Route: 048
  2. LASIX [Concomitant]
     Active Substance: FUROSEMIDE
  3. METOLAZON [Concomitant]
     Active Substance: METOLAZONE
  4. DAFALGAN [Concomitant]
     Active Substance: ACETAMINOPHEN
  5. ALDACTONE [Concomitant]
     Active Substance: SPIRONOLACTONE
  6. HEPARIN [Concomitant]
     Active Substance: HEPARIN SODIUM
  7. PASPERTIN [Concomitant]
     Active Substance: METOCLOPRAMIDE HYDROCHLORIDE
  8. EUTHYROX [Suspect]
     Active Substance: LEVOTHYROXINE SODIUM
     Indication: HYPOTHYROIDISM
     Dosage: 150 MCG (150 MCG, 1 IN 1 D), ORAL
     Route: 048
  9. FLUCTINE [Suspect]
     Active Substance: FLUOXETINE HYDROCHLORIDE
     Indication: DEPRESSION
     Dosage: 40 MG (40 MG, 1 IN 1 D), ORAL
     Route: 048
     Dates: start: 201407
  10. ARANESP [Concomitant]
     Active Substance: DARBEPOETIN ALFA
  11. ISOPHANE INSULIN [Concomitant]
     Active Substance: INSULIN NOS
  12. CEFEPIME [Concomitant]
     Active Substance: CEFEPIME\CEFEPIME HYDROCHLORIDE
  13. NOVORAPID [Concomitant]
     Active Substance: INSULIN ASPART
  14. CO-DAFALGAN [Concomitant]
     Active Substance: ACETAMINOPHEN\CODEINE PHOSPHATE
  15. CIPROFLOXACIN. [Suspect]
     Active Substance: CIPROFLOXACIN
     Indication: PNEUMONIA BACTERIAL
     Dosage: 800 MG (400 MG, 2 IN 1 D), ORAL
     Route: 048
     Dates: start: 20140920, end: 20141003
  16. COMBIVENT [Suspect]
     Active Substance: ALBUTEROL SULFATE\IPRATROPIUM BROMIDE
     Indication: PNEUMONIA BACTERIAL
     Dosage: 4 DF (1 DF, 4 IN 1 D)TWICE MORE IF NEEDED (1 DF, 4 IN 1 D), OTHER
     Route: 050
     Dates: start: 20140902
  17. MAGNESIUM ASPARTATE [Concomitant]
     Active Substance: MAGNESIUM ASPARTATE
  18. MOVICOL [Concomitant]
     Active Substance: POLYETHYLENE GLYCOL 3350\POTASSIUM CHLORIDE\SODIUM BICARBONATE\SODIUM CHLORIDE
  19. BELOC [Concomitant]
     Active Substance: METOPROLOL TARTRATE
  20. TRADJENTA [Concomitant]
     Active Substance: LINAGLIPTIN
  21. CALCIMAGON D3 [Concomitant]
     Active Substance: CALCIUM\CHOLECALCIFEROL
  22. XALATAN [Concomitant]
     Active Substance: LATANOPROST
  23. LAXOBERON [Concomitant]
     Active Substance: SODIUM PICOSULFATE
  24. ASPIRIN. [Concomitant]
     Active Substance: ASPIRIN
  25. SORTIS [Concomitant]
     Active Substance: ATORVASTATIN
  26. TAZOBAC [Concomitant]
     Active Substance: PIPERACILLIN SODIUM\TAZOBACTAM SODIUM
  27. DISTRANEURIN [Concomitant]
     Active Substance: CLOMETHIAZOLE
  28. VITAMIN B12 [Concomitant]
     Active Substance: CYANOCOBALAMIN

REACTIONS (5)
  - Extrapyramidal disorder [None]
  - Atrial fibrillation [None]
  - Cogwheel rigidity [None]
  - Tremor [None]
  - Cardiac failure acute [None]

NARRATIVE: CASE EVENT DATE: 20141011
